FAERS Safety Report 4338108-1 (Version None)
Quarter: 2004Q2

REPORT INFORMATION
  Report Type: 
  Country: None (occurrence: None)
  Receive Date: 20040407
  Receipt Date: 20040326
  Transmission Date: 20050107
  Serious: Yes (Hospitalization)
  Sender: FDA-Public Use
  Company Number: 02P-056-0205400-00

PATIENT
  Age: 28 Year
  Sex: Male
  Weight: 68 kg

DRUGS (2)
  1. KALETRA [Suspect]
     Indication: HIV INFECTION
     Dosage: 2 DOSAGE FORMS, 1 IN 1 D, PER ORAL
     Route: 048
     Dates: start: 20010629
  2. ZIDOVUDINE W/LAMIVUDINE [Concomitant]

REACTIONS (4)
  - BLOOD URINE [None]
  - NEPHROLITHIASIS [None]
  - PROTEIN URINE [None]
  - RENAL COLIC [None]
